FAERS Safety Report 25896638 (Version 2)
Quarter: 2025Q4

REPORT INFORMATION
  Report Type: Spontaneous
  Country: US (occurrence: US)
  Receive Date: 20251008
  Receipt Date: 20251015
  Transmission Date: 20260118
  Serious: Yes (Other)
  Sender: ALCON
  Company Number: US-ALCON LABORATORIES-ALC2025US005323

PATIENT
  Sex: Female

DRUGS (1)
  1. ACOLTREMON [Suspect]
     Active Substance: ACOLTREMON
     Indication: Product used for unknown indication
     Dosage: UNK
     Route: 047
     Dates: start: 20250908, end: 20250911

REACTIONS (3)
  - Visual impairment [Unknown]
  - Eye irritation [Unknown]
  - Eye pain [Unknown]
